FAERS Safety Report 7008813-7 (Version None)
Quarter: 2010Q3

REPORT INFORMATION
  Report Type: 
  Country: None (occurrence: None)
  Receive Date: 20100922
  Receipt Date: 20100915
  Transmission Date: 20110219
  Serious: Yes (Other)
  Sender: FDA-Public Use
  Company Number: US-ABBOTT-10P-163-0670809-00

PATIENT
  Age: 37 Year
  Sex: Female

DRUGS (3)
  1. LUPRON DEPOT [Suspect]
     Indication: SURGICAL PRECONDITIONING
  2. LUPRON DEPOT [Suspect]
     Indication: ARTIFICIAL MENOPAUSE
  3. CONJUGATED ESTROGENS [Concomitant]
     Indication: OOPHORECTOMY
     Route: 048

REACTIONS (3)
  - HOT FLUSH [None]
  - INSOMNIA [None]
  - SURGERY [None]
